FAERS Safety Report 10557966 (Version 1)
Quarter: 2014Q4

REPORT INFORMATION
  Report Type: Report from Study
  Country: CA (occurrence: CA)
  Receive Date: 20141031
  Receipt Date: 20141031
  Transmission Date: 20150529
  Serious: Yes (Other)
  Sender: FDA-Public Use
  Company Number: CA-BRISTOL-MYERS SQUIBB COMPANY-21538996

PATIENT
  Age: 57 Year
  Sex: Female

DRUGS (6)
  1. HYDROMORPH CONTIN [Concomitant]
     Active Substance: HYDROMORPHONE
  2. TYLENOL [Concomitant]
     Active Substance: ACETAMINOPHEN
  3. ELAVIL [Concomitant]
     Active Substance: AMITRIPTYLINE HYDROCHLORIDE
  4. ORENCIA [Suspect]
     Active Substance: ABATACEPT
     Indication: RHEUMATOID ARTHRITIS
     Route: 042
     Dates: start: 20130523, end: 20140819
  5. METHOTREXATE [Suspect]
     Active Substance: METHOTREXATE
  6. LYRICA [Concomitant]
     Active Substance: PREGABALIN

REACTIONS (1)
  - Hepatic cirrhosis [Unknown]
